FAERS Safety Report 15891135 (Version 2)
Quarter: 2019Q1

REPORT INFORMATION
  Report Type: Spontaneous
  Country: GB (occurrence: GB)
  Receive Date: 20190130
  Receipt Date: 20190206
  Transmission Date: 20190417
  Serious: Yes (Other)
  Sender: FDA-Public Use
  Company Number: GB-MYLANLABS-2019M1007795

PATIENT
  Sex: Female

DRUGS (1)
  1. LIPANTIL [Suspect]
     Active Substance: FENOFIBRATE
     Indication: PRODUCT USED FOR UNKNOWN INDICATION
     Dosage: 200 MILLIGRAM

REACTIONS (3)
  - Seizure [Not Recovered/Not Resolved]
  - Withdrawal syndrome [Unknown]
  - Drug withdrawal convulsions [Not Recovered/Not Resolved]
